FAERS Safety Report 25181024 (Version 1)
Quarter: 2025Q2

REPORT INFORMATION
  Report Type: Spontaneous
  Country: IT (occurrence: IT)
  Receive Date: 20250410
  Receipt Date: 20250410
  Transmission Date: 20250717
  Serious: Yes (Other)
  Sender: ENDO
  Company Number: IT-ENDO USA, INC.-2025-000973

PATIENT
  Age: 76 Year
  Sex: Male

DRUGS (2)
  1. HYDROXYUREA [Suspect]
     Active Substance: HYDROXYUREA
     Indication: Myeloproliferative neoplasm
     Route: 065
     Dates: start: 2013
  2. BENSERAZIDE HYDROCHLORIDE\LEVODOPA [Concomitant]
     Active Substance: BENSERAZIDE HYDROCHLORIDE\LEVODOPA
     Indication: Parkinson^s disease
     Route: 065
     Dates: start: 2012

REACTIONS (5)
  - Porphyria acute [Unknown]
  - Cardiac failure [Unknown]
  - Hepatosplenomegaly [Unknown]
  - Acute kidney injury [Unknown]
  - Anaemia [Unknown]
